FAERS Safety Report 5745127-7 (Version None)
Quarter: 2008Q2

REPORT INFORMATION
  Report Type: 
  Country: None (occurrence: None)
  Receive Date: 20080521
  Receipt Date: 20080508
  Transmission Date: 20081010
  Serious: Yes (Other)
  Sender: FDA-Public Use
  Company Number: US-BAYER-200810533BCC

PATIENT
  Age: 82 Year
  Sex: Male
  Weight: 66 kg

DRUGS (15)
  1. PHILLIPS' LAXATIVE [Suspect]
     Indication: CONSTIPATION
     Route: 048
     Dates: start: 20070101, end: 20070101
  2. MILK OF MAGNESIA TAB [Suspect]
     Indication: CONSTIPATION
     Route: 048
     Dates: start: 20070101, end: 20070101
  3. ANTI-DIABETIC [Concomitant]
  4. GLYBURIDE [Concomitant]
     Dosage: TOTAL DAILY DOSE: 1.25 MG
     Route: 048
     Dates: end: 20080201
  5. GLYBURIDE [Concomitant]
     Route: 048
     Dates: start: 20080201
  6. LISINOPRIL [Concomitant]
  7. FELODIPINE [Concomitant]
     Dosage: TOTAL DAILY DOSE: 5 MG  UNIT DOSE: 10 MG
     Route: 048
  8. NITRO 1/150 [Concomitant]
  9. LASIX [Concomitant]
  10. DOXAZOSIN MESYLATE [Concomitant]
  11. DOXAZOSIN MESYLATE [Concomitant]
  12. COREG [Concomitant]
  13. DEMADEX [Concomitant]
  14. IMDUR [Concomitant]
     Route: 048
  15. IRON SULFATETHIAMIN COMPOUND TAB [Concomitant]
     Route: 048

REACTIONS (1)
  - HEART RATE INCREASED [None]
